FAERS Safety Report 8728667 (Version 2)
Quarter: 2013Q1

REPORT INFORMATION
  Report Type: Spontaneous
  Country: BR (occurrence: BR)
  Receive Date: 20120817
  Receipt Date: 20130110
  Transmission Date: 20140127
  Serious: Yes (Death, Other)
  Sender: FDA-Public Use
  Company Number: PHHY2012BR070370

PATIENT
  Sex: Female

DRUGS (3)
  1. DIOVAN HCT [Suspect]
     Indication: HYPERTENSION
     Dosage: 1 DF (\320 MG VALS/25 MG HCTZ) , DAILY
     Route: 048
  2. DIOVAN HCT [Suspect]
     Dosage: 2 DF, DAILY
     Route: 048
  3. FORASEQ [Suspect]
     Indication: DYSPNOEA
     Dosage: 2 DF (12 MCG FOR/400 MCG BUD) , BID,01 INHALATION AT MORNING AND 01 INHALATION AT NIGHT

REACTIONS (6)
  - Multi-organ failure [Fatal]
  - Shock [Fatal]
  - Renal failure [Fatal]
  - Cardiac disorder [Unknown]
  - Renal disorder [Unknown]
  - Liver disorder [Unknown]
